FAERS Safety Report 4494421-9 (Version None)
Quarter: 2004Q4

REPORT INFORMATION
  Report Type: 
  Country: None (occurrence: None)
  Receive Date: 20041104
  Receipt Date: 20041104
  Transmission Date: 20050328
  Serious: Yes (Life-Threatening, Hospitalization)
  Sender: FDA-Public Use
  Company Number: None

PATIENT
  Sex: Male
  Weight: 85 kg

DRUGS (1)
  1. LEVAQUIN [Suspect]
     Indication: PANCREATITIS
     Dosage: 500 MG PO QD
     Route: 048
     Dates: start: 20040910, end: 20040917

REACTIONS (7)
  - BLOOD BLISTER [None]
  - OEDEMA PERIPHERAL [None]
  - OPEN WOUND [None]
  - OROPHARYNGEAL SWELLING [None]
  - PAIN IN EXTREMITY [None]
  - PANCREATITIS ACUTE [None]
  - SWELLING FACE [None]
